FAERS Safety Report 7344434-4 (Version None)
Quarter: 2011Q1

REPORT INFORMATION
  Report Type: 
  Country: None (occurrence: None)
  Receive Date: 20110310
  Receipt Date: 20110103
  Transmission Date: 20110831
  Serious: No
  Sender: FDA-Public Use
  Company Number: A0902411A

PATIENT
  Age: 47 Year
  Sex: Female

DRUGS (1)
  1. NICORETTE (MINT) [Suspect]
     Dates: start: 20110102, end: 20110102

REACTIONS (3)
  - STOMATITIS [None]
  - ORAL DISCOMFORT [None]
  - NAUSEA [None]
